FAERS Safety Report 13644574 (Version 1)
Quarter: 2017Q2

REPORT INFORMATION
  Report Type: Spontaneous
  Country: US (occurrence: US)
  Receive Date: 20170612
  Receipt Date: 20170612
  Transmission Date: 20170830
  Serious: No
  Sender: FDA-Public Use
  Company Number: US-ROCHE-1290864

PATIENT
  Sex: Female

DRUGS (10)
  1. LASIX [Concomitant]
     Active Substance: FUROSEMIDE
  2. HYDRALAZINE [Concomitant]
     Active Substance: HYDRALAZINE HYDROCHLORIDE
  3. XELODA [Suspect]
     Active Substance: CAPECITABINE
     Indication: GASTRIC CANCER
     Dosage: 3 TABLETS EVERY MORNING AND 3 TABLETS EVERY EVENING FOR 14 DAYS ON FOLLOWED BY 7 DAYS OFF 14 DAYS ON
     Route: 048
     Dates: start: 20130822
  4. FUROSEMIDE. [Concomitant]
     Active Substance: FUROSEMIDE
  5. PREDNISONE. [Concomitant]
     Active Substance: PREDNISONE
  6. SENSIPAR [Concomitant]
     Active Substance: CINACALCET HYDROCHLORIDE
  7. AMLODIPINE [Concomitant]
     Active Substance: AMLODIPINE BESYLATE
  8. TACROLIMUS. [Concomitant]
     Active Substance: TACROLIMUS
  9. LOSARTAN. [Concomitant]
     Active Substance: LOSARTAN
  10. ZEMPLAR [Concomitant]
     Active Substance: PARICALCITOL

REACTIONS (1)
  - Skin exfoliation [Not Recovered/Not Resolved]
